FAERS Safety Report 6348022-8 (Version None)
Quarter: 2009Q3

REPORT INFORMATION
  Report Type: 
  Country: None (occurrence: None)
  Receive Date: 20090908
  Receipt Date: 20090828
  Transmission Date: 20100115
  Serious: Yes (Other)
  Sender: FDA-Public Use
  Company Number: CHPA2009US08859

PATIENT
  Age: 80 Year
  Sex: Female
  Weight: 72.6 kg

DRUGS (2)
  1. VOLTAREN [Suspect]
     Indication: ARTHRITIS
     Dosage: 4 G, QID, TOPICAL
     Route: 061
     Dates: start: 20090319, end: 20090101
  2. EXTRA STRENGTH TYLENOL [Concomitant]

REACTIONS (6)
  - ABDOMINAL PAIN LOWER [None]
  - CYSTITIS [None]
  - DIVERTICULITIS [None]
  - DRUG INEFFECTIVE [None]
  - THERAPEUTIC RESPONSE DECREASED [None]
  - URINARY TRACT INFECTION [None]
